FAERS Safety Report 10297514 (Version 2)
Quarter: 2014Q4

REPORT INFORMATION
  Report Type: Spontaneous
  Country: CN (occurrence: CN)
  Receive Date: 20140711
  Receipt Date: 20141021
  Transmission Date: 20150528
  Serious: Yes (Death, Other)
  Sender: FDA-Public Use
  Company Number: CN-JNJFOC-20140703042

PATIENT
  Age: 5 Year
  Sex: Female

DRUGS (1)
  1. TOPAMAX [Suspect]
     Active Substance: TOPIRAMATE
     Indication: EPILEPSY
     Dosage: STRENGTH: 25MG*60
     Route: 048
     Dates: start: 20140627, end: 20140629

REACTIONS (4)
  - Death [Fatal]
  - Loss of consciousness [Unknown]
  - Muscle spasms [Unknown]
  - Pyrexia [Recovered/Resolved]

NARRATIVE: CASE EVENT DATE: 20140628
